FAERS Safety Report 8588169 (Version 3)
Quarter: 2014Q2

REPORT INFORMATION
  Report Type: Spontaneous
  Country: US (occurrence: US)
  Receive Date: 20120531
  Receipt Date: 20140520
  Transmission Date: 20141212
  Serious: Yes (Hospitalization, Other)
  Sender: FDA-Public Use
  Company Number: US-ROCHE-1071619

PATIENT
  Age: 42 Year
  Sex: Male

DRUGS (1)
  1. ACCUTANE [Suspect]
     Indication: PSORIASIS
     Route: 065
     Dates: start: 199012, end: 199811

REACTIONS (4)
  - Crohn^s disease [Unknown]
  - Gastrointestinal haemorrhage [Unknown]
  - Large intestinal stenosis [Recovering/Resolving]
  - Injury [Unknown]
